FAERS Safety Report 7772839-6 (Version None)
Quarter: 2011Q3

REPORT INFORMATION
  Report Type: 
  Country: None (occurrence: None)
  Receive Date: 20110922
  Receipt Date: 20100923
  Transmission Date: 20111222
  Serious: No
  Sender: FDA-Public Use
  Company Number: US-ASTRAZENECA-2010SE45249

PATIENT
  Age: 42 Year
  Sex: Female
  Weight: 127 kg

DRUGS (5)
  1. SEROQUEL [Suspect]
     Route: 048
  2. AMBIEN [Concomitant]
  3. REMERON [Concomitant]
  4. SEROQUEL [Suspect]
     Route: 048
  5. SEROQUEL [Suspect]
     Indication: BIPOLAR DISORDER
     Route: 048
     Dates: start: 19950101

REACTIONS (7)
  - CRYING [None]
  - DIABETES MELLITUS [None]
  - ARTHRITIS [None]
  - TENSION [None]
  - DRUG DOSE OMISSION [None]
  - DEPRESSED MOOD [None]
  - INSOMNIA [None]
